FAERS Safety Report 5417134-5 (Version None)
Quarter: 2007Q3

REPORT INFORMATION
  Report Type: 
  Country: None (occurrence: None)
  Receive Date: 20070814
  Receipt Date: 20070730
  Transmission Date: 20080115
  Serious: Yes (Hospitalization)
  Sender: FDA-Public Use
  Company Number: 2007AD000071

PATIENT
  Age: 54 Year
  Sex: Female

DRUGS (8)
  1. KEFLEX [Suspect]
     Indication: DRUG USE FOR UNKNOWN INDICATION
     Dates: start: 20070201
  2. BONIVA [Suspect]
     Indication: DRUG USE FOR UNKNOWN INDICATION
     Dosage: 150 MG; PO
     Route: 048
     Dates: start: 20060901, end: 20070201
  3. RANITIDINE [Concomitant]
  4. FLONASE [Concomitant]
  5. FLOVENT [Concomitant]
  6. SPIRIVA [Concomitant]
  7. TYLENOL [Concomitant]
  8. ASPIRIN [Concomitant]

REACTIONS (8)
  - ARTHRALGIA [None]
  - CONSTIPATION [None]
  - DIARRHOEA [None]
  - HEADACHE [None]
  - IATROGENIC INJURY [None]
  - INFLUENZA [None]
  - SMALL INTESTINAL PERFORATION [None]
  - STOMACH DISCOMFORT [None]
